FAERS Safety Report 18958217 (Version 1)
Quarter: 2021Q1

REPORT INFORMATION
  Report Type: Spontaneous
  Country: US (occurrence: US)
  Receive Date: 20210302
  Receipt Date: 20210302
  Transmission Date: 20210420
  Serious: Yes (Hospitalization)
  Sender: FDA-Public Use
  Company Number: None

PATIENT
  Age: 21 Month
  Sex: Female
  Weight: 9.9 kg

DRUGS (3)
  1. TEMOZOLOMIDE. [Suspect]
     Active Substance: TEMOZOLOMIDE
     Dates: end: 20210224
  2. CAMPTOSAR [Suspect]
     Active Substance: IRINOTECAN HYDROCHLORIDE
     Dates: end: 20210224
  3. DINUTUXIMAB (CHIMERIC MONOCLONAL ANTIBODY 14.18) [Suspect]
     Active Substance: DINUTUXIMAB
     Dates: end: 20210225

REACTIONS (7)
  - Urticaria [None]
  - Cardio-respiratory arrest [None]
  - Cyanosis [None]
  - Dyspnoea [None]
  - Fluid retention [None]
  - Secretion discharge [None]
  - Toxicity to various agents [None]

NARRATIVE: CASE EVENT DATE: 20210225
